FAERS Safety Report 5088132-9 (Version None)
Quarter: 2006Q3

REPORT INFORMATION
  Report Type: 
  Country: None (occurrence: None)
  Receive Date: 20060823
  Receipt Date: 20060823
  Transmission Date: 20061208
  Serious: Yes (Hospitalization)
  Sender: FDA-Public Use
  Company Number: None

PATIENT

DRUGS (1)
  1. PROPOFOL [Suspect]
     Indication: SURGERY
     Dosage: 200 MG 1 TIME IV BOLUS
     Route: 040
     Dates: start: 20060818, end: 20060818

REACTIONS (1)
  - NO THERAPEUTIC RESPONSE [None]
